FAERS Safety Report 7036941-9 (Version None)
Quarter: 2010Q4

REPORT INFORMATION
  Report Type: 
  Country: None (occurrence: None)
  Receive Date: 20101011
  Receipt Date: 20101003
  Transmission Date: 20110411
  Serious: No
  Sender: FDA-Public Use
  Company Number: KR-JNJFOC-20101000975

PATIENT
  Age: 65 Year
  Sex: Female

DRUGS (2)
  1. DURAGESIC-100 [Suspect]
     Indication: PAIN MANAGEMENT
     Route: 062
  2. DOMPERIDONE MALEATE [Concomitant]
     Route: 048

REACTIONS (3)
  - DIZZINESS [None]
  - DRUG ADMINISTRATION ERROR [None]
  - VOMITING [None]
